FAERS Safety Report 13431302 (Version 5)
Quarter: 2022Q4

REPORT INFORMATION
  Report Type: Report from Study
  Country: FR (occurrence: FR)
  Receive Date: 20170412
  Receipt Date: 20221027
  Transmission Date: 20230113
  Serious: Yes (Other)
  Sender: FDA-Public Use
  Company Number: FR-ASTELLAS-2017US013355

PATIENT
  Age: 76 Year
  Sex: Male

DRUGS (24)
  1. TACROLIMUS [Suspect]
     Active Substance: TACROLIMUS
     Indication: Renal transplant
     Route: 065
     Dates: start: 20160408
  2. TACROLIMUS [Suspect]
     Active Substance: TACROLIMUS
     Route: 065
     Dates: start: 20161227
  3. TACROLIMUS [Suspect]
     Active Substance: TACROLIMUS
     Route: 065
     Dates: start: 20161229
  4. TACROLIMUS [Suspect]
     Active Substance: TACROLIMUS
     Dosage: 0.5 MG, ONCE DAILY
     Route: 065
     Dates: start: 20161231
  5. TACROLIMUS [Suspect]
     Active Substance: TACROLIMUS
     Route: 065
     Dates: start: 20170103
  6. TACROLIMUS [Suspect]
     Active Substance: TACROLIMUS
     Route: 065
     Dates: start: 20170106
  7. TACROLIMUS [Suspect]
     Active Substance: TACROLIMUS
     Route: 065
     Dates: start: 20170114
  8. TACROLIMUS [Suspect]
     Active Substance: TACROLIMUS
     Route: 065
     Dates: start: 20170204
  9. TACROLIMUS [Suspect]
     Active Substance: TACROLIMUS
     Route: 065
     Dates: start: 20170210
  10. TACROLIMUS [Suspect]
     Active Substance: TACROLIMUS
     Route: 065
     Dates: start: 20170214
  11. TACROLIMUS [Suspect]
     Active Substance: TACROLIMUS
     Route: 065
     Dates: start: 20170225
  12. TACROLIMUS [Suspect]
     Active Substance: TACROLIMUS
     Route: 065
     Dates: start: 20170311
  13. TACROLIMUS [Suspect]
     Active Substance: TACROLIMUS
     Route: 065
     Dates: start: 20170321
  14. PREDNISONE [Concomitant]
     Active Substance: PREDNISONE
     Indication: Immunosuppression
     Dosage: 5 UNKNOWN UNITS, TOTAL DAILY DOSE
     Route: 065
     Dates: start: 20111214, end: 20161224
  15. PREDNISONE [Concomitant]
     Active Substance: PREDNISONE
     Dosage: 10 UNKNOWN UNITS, TOTAL DAILY DOSE
     Route: 065
     Dates: start: 20161225, end: 20161230
  16. PREDNISONE [Concomitant]
     Active Substance: PREDNISONE
     Dosage: 5  UNKNOWN UNITS, TOTAL DAILY DOSE
     Route: 065
     Dates: start: 20161231, end: 20170107
  17. PREDNISONE [Concomitant]
     Active Substance: PREDNISONE
     Dosage: 5 UNKNOWN UNITS, TOTAL DAILY DOSE
     Route: 065
     Dates: start: 20170110
  18. CERTICAN [Concomitant]
     Active Substance: EVEROLIMUS
     Indication: Immunosuppression
     Dosage: 1.25 UNKNOWN UNITS, TOTAL DAILY DOSE
     Route: 065
     Dates: start: 20140703, end: 20161224
  19. CERTICAN [Concomitant]
     Active Substance: EVEROLIMUS
     Dosage: 0.5 UNKNOWN UNITS, TOTAL DAILY DOSE
     Route: 065
     Dates: start: 20161225, end: 20161225
  20. SOLU-MEDROL [Concomitant]
     Active Substance: METHYLPREDNISOLONE SODIUM SUCCINATE
     Indication: Immunosuppression
     Dosage: 5  UNKNOWN UNITS, TOTAL DAILY DOSE
     Route: 065
     Dates: start: 20170108, end: 20170109
  21. CELLCEPT [Concomitant]
     Active Substance: MYCOPHENOLATE MOFETIL
     Indication: Immunosuppression
     Dosage: 500 UNKNOWN UNITS, TOTAL DAILY DOSE
     Route: 065
     Dates: start: 20161229, end: 20161229
  22. CELLCEPT [Concomitant]
     Active Substance: MYCOPHENOLATE MOFETIL
     Dosage: 1000 UNKNOWN UNITS, TOTAL DAILY DOSE
     Route: 065
     Dates: start: 20161230, end: 20170126
  23. CELLCEPT [Concomitant]
     Active Substance: MYCOPHENOLATE MOFETIL
     Dosage: 500 UNKNOWN UNITS, TOTAL DAILY DOSE
     Route: 065
     Dates: start: 20170127, end: 20170128
  24. CELLCEPT [Concomitant]
     Active Substance: MYCOPHENOLATE MOFETIL
     Dosage: 1000 UNKNOWN UNITS, TOTAL DAILY DOSE
     Route: 065
     Dates: start: 20170129

REACTIONS (2)
  - Renal tubular disorder [Recovered/Resolved]
  - Cytomegalovirus infection [Recovered/Resolved]

NARRATIVE: CASE EVENT DATE: 20170113
